FAERS Safety Report 5442231-8 (Version None)
Quarter: 2007Q3

REPORT INFORMATION
  Report Type: 
  Country: None (occurrence: None)
  Receive Date: 20070731
  Receipt Date: 20070617
  Transmission Date: 20080115
  Serious: No
  Sender: FDA-Public Use
  Company Number: US200706003980

PATIENT
  Age: 45 Year
  Sex: Female
  Weight: 99.8 kg

DRUGS (2)
  1. BYETTA [Suspect]
     Indication: WEIGHT DECREASED
     Dosage: 5 UG, 2/D, SUBCUTANEOUS
     Route: 058
     Dates: start: 20070616
  2. LOPRESSOR [Concomitant]

REACTIONS (7)
  - DECREASED APPETITE [None]
  - FLUSHING [None]
  - HEADACHE [None]
  - HEART RATE INCREASED [None]
  - HYPERTENSION [None]
  - MUSCULOSKELETAL STIFFNESS [None]
  - NAUSEA [None]
